FAERS Safety Report 9077936 (Version 1)
Quarter: 2013Q1

REPORT INFORMATION
  Report Type: Report from Study
  Country: US (occurrence: US)
  Receive Date: 20130130
  Receipt Date: 20130130
  Transmission Date: 20140127
  Serious: No
  Sender: FDA-Public Use
  Company Number: US-ABBOTT-12P-163-0976408-00

PATIENT
  Age: 49 Year
  Sex: Female

DRUGS (2)
  1. HUMIRA [Suspect]
     Indication: PRODUCT USED FOR UNKNOWN INDICATION
     Route: 058
     Dates: start: 20120827, end: 20120827
  2. HUMIRA [Suspect]
     Route: 058
     Dates: start: 201208

REACTIONS (3)
  - Chills [Unknown]
  - Headache [Unknown]
  - Pyrexia [Unknown]
